FAERS Safety Report 4513225-1 (Version None)
Quarter: 2004Q4

REPORT INFORMATION
  Report Type: 
  Country: None (occurrence: None)
  Receive Date: 20041130
  Receipt Date: 20041019
  Transmission Date: 20050328
  Serious: Yes (Hospitalization, Other)
  Sender: FDA-Public Use
  Company Number: DE-MERCK-0410DEU00553

PATIENT
  Age: 65 Year
  Sex: Male

DRUGS (6)
  1. VIOXX [Suspect]
     Indication: POLYARTHRITIS
     Route: 048
     Dates: start: 20010101, end: 20040901
  2. FLUOCORTOLONE CAPROATE [Concomitant]
     Route: 048
  3. SITOSTEROLS [Concomitant]
     Indication: BENIGN PROSTATIC HYPERPLASIA
     Route: 048
     Dates: start: 19980901
  4. BECLOMETHASONE DIPROPIONATE [Concomitant]
     Indication: BRONCHITIS CHRONIC
     Route: 055
  5. SALMETEROL XINAFOATE [Concomitant]
     Indication: BRONCHITIS CHRONIC
     Route: 055
  6. IPRATROPIUM BROMIDE [Concomitant]
     Indication: BRONCHITIS CHRONIC
     Route: 055

REACTIONS (3)
  - CEREBRAL HAEMORRHAGE [None]
  - CONSTIPATION [None]
  - GRAND MAL CONVULSION [None]
